FAERS Safety Report 8816303 (Version 1)
Quarter: 2012Q4

REPORT INFORMATION
  Report Type: Spontaneous
  Country: US (occurrence: None)
  Receive Date: 20120927
  Receipt Date: 20120927
  Transmission Date: 20130627
  Serious: Yes (Life-Threatening)
  Sender: FDA-Public Use
  Company Number: None

PATIENT
  Age: 42 Year
  Sex: Female
  Weight: 47.63 kg

DRUGS (1)
  1. NEURONTIN [Suspect]
     Indication: RADICULAR PAIN
     Route: 048
     Dates: start: 20100901, end: 20100901

REACTIONS (8)
  - Dyspnoea [None]
  - Chest pain [None]
  - Chest discomfort [None]
  - Hyperhidrosis [None]
  - Lethargy [None]
  - Fatigue [None]
  - Heart rate decreased [None]
  - Heart rate increased [None]
